FAERS Safety Report 21022353 (Version 4)
Quarter: 2022Q4

REPORT INFORMATION
  Report Type: Spontaneous
  Country: US (occurrence: US)
  Receive Date: 20220629
  Receipt Date: 20221221
  Transmission Date: 20230113
  Serious: Yes (Disabling, Other)
  Sender: FDA-Public Use
  Company Number: US-PFIZER INC-PV202200010921

PATIENT
  Age: 70 Year
  Sex: Female
  Weight: 57.61 kg

DRUGS (2)
  1. IBRANCE [Suspect]
     Active Substance: PALBOCICLIB
     Indication: Bone cancer
     Dosage: 125 MG, CYCLIC (1 TABLET ONCE DAILY WITH OR WITHOUT FOOD FOR 21 DAYS, 7 DAYS OFF) )
     Route: 048
     Dates: start: 20220617
  2. IBRANCE [Suspect]
     Active Substance: PALBOCICLIB
     Indication: Hepatic cancer

REACTIONS (6)
  - Sternal fracture [Unknown]
  - Diarrhoea [Not Recovered/Not Resolved]
  - Cough [Not Recovered/Not Resolved]
  - Off label use [Unknown]
  - Fatigue [Unknown]
  - Petechiae [Recovering/Resolving]

NARRATIVE: CASE EVENT DATE: 20220101
